FAERS Safety Report 7346116 (Version 2)
Quarter: 2014Q2

REPORT INFORMATION
  Report Type: Spontaneous
  Country: US (occurrence: None)
  Receive Date: 20140310
  Receipt Date: 20140521
  Transmission Date: 20141212
  Serious: Yes (Other)
  Sender: FDA-Public Use
  Company Number: 2010S1001532

PATIENT
  Age: 65 Year
  Sex: Female

DRUGS (6)
  1. FLEET PHOSPHO-SODA ORAL SALINE LAXATIVE, GINGER-LEMON FLAVOR [Suspect]
     Indication: COLONOSCOPY
     Dosage: PO
     Route: 048
     Dates: start: 20060820, end: 20060820
  2. LIPITOR (ATORVASTATIN) [Concomitant]
  3. LANTUS (INSULIN) [Concomitant]
  4. ATROVENT (IPRATROPIUM) [Concomitant]
  5. LEVOXYL (LEVOTHYROXINE SODIUM) [Concomitant]
  6. HUMALOG (INSULIN LISPRO) [Concomitant]

REACTIONS (11)
  - Renal disorder [None]
  - Cellulitis [None]
  - Dehydration [None]
  - Renal failure acute [None]
  - Tubulointerstitial nephritis [None]
  - Respiratory tract congestion [None]
  - Cough [None]
  - Nasal congestion [None]
  - Rhinorrhoea [None]
  - Dysgeusia [None]
  - Sinusitis [None]
